FAERS Safety Report 15108759 (Version 2)
Quarter: 2018Q3

REPORT INFORMATION
  Report Type: Spontaneous
  Country: US (occurrence: US)
  Receive Date: 20180705
  Receipt Date: 20180810
  Transmission Date: 20181010
  Serious: Yes (Disabling)
  Sender: FDA-Public Use
  Company Number: PHEH2018US025934

PATIENT
  Sex: Male

DRUGS (1)
  1. COSENTYX [Suspect]
     Active Substance: SECUKINUMAB
     Indication: PSORIASIS
     Dosage: 300 MG, QMO
     Route: 058
     Dates: start: 20171120

REACTIONS (3)
  - Erectile dysfunction [Not Recovered/Not Resolved]
  - Sexual dysfunction [Unknown]
  - Hypotonia [Unknown]

NARRATIVE: CASE EVENT DATE: 2017
